FAERS Safety Report 7425810-8 (Version None)
Quarter: 2011Q2

REPORT INFORMATION
  Report Type: 
  Country: None (occurrence: None)
  Receive Date: 20110420
  Receipt Date: 20110411
  Transmission Date: 20111010
  Serious: Yes (Other)
  Sender: FDA-Public Use
  Company Number: TW-AMGEN-TWNSP2011019884

PATIENT
  Age: 19 Year
  Sex: Female

DRUGS (5)
  1. ETANERCEPT [Suspect]
     Indication: JUVENILE ARTHRITIS
     Dosage: 25 MG (0.6 MG/KG/WEEK) ONCE A WEEK FOR 1 MONTH
     Route: 058
  2. ETANERCEPT [Suspect]
     Dosage: 16.5 MG ONCE A WEEK(0.4 MG/KG/WEEK)
     Route: 058
  3. PREDNISOLONE [Concomitant]
     Dosage: 0.25 MG/DAY/KG
  4. METHOTREXATE [Concomitant]
     Dosage: 10 MG/M2/WEEK
  5. ETANERCEPT [Suspect]
     Dosage: 25 MG (1.2MG/KG/WEEK) TWICE A WEEK
     Route: 058

REACTIONS (6)
  - ARTHRALGIA [None]
  - ERYTHEMA [None]
  - PRURITUS [None]
  - RASH [None]
  - JOINT SWELLING [None]
  - HYPERSENSITIVITY [None]
